FAERS Safety Report 15703356 (Version 1)
Quarter: 2018Q4

REPORT INFORMATION
  Report Type: Spontaneous
  Country: US (occurrence: US)
  Receive Date: 20181130
  Receipt Date: 20181130
  Transmission Date: 20190205
  Serious: No
  Sender: FDA-Public Use
  Company Number: None

PATIENT
  Sex: Female

DRUGS (1)
  1. CADD MS3- PUMP [Suspect]
     Active Substance: DEVICE

REACTIONS (3)
  - Device malfunction [None]
  - Dyspnoea [None]
  - Dizziness [None]
